FAERS Safety Report 5988976-2 (Version None)
Quarter: 2008Q4

REPORT INFORMATION
  Report Type: 
  Country: None (occurrence: None)
  Receive Date: 20081210
  Receipt Date: 20081203
  Transmission Date: 20090506
  Serious: Yes (Other)
  Sender: FDA-Public Use
  Company Number: US-BAYER-200814726BCC

PATIENT
  Age: 42 Year
  Sex: Female
  Weight: 70 kg

DRUGS (1)
  1. ALKA-SELTZER PLUS LIQUID GELS MUCUS + CONGESTION (DEXTROMETHORPHAN/GUI [Suspect]
     Indication: RESPIRATORY TRACT CONGESTION
     Dosage: TOTAL DAILY DOSE: 2 DF  UNIT DOSE: 1 DF
     Dates: start: 20081201, end: 20081201

REACTIONS (3)
  - DIZZINESS [None]
  - DYSPNOEA [None]
  - SYNCOPE [None]
